FAERS Safety Report 10220828 (Version 1)
Quarter: 2014Q2

REPORT INFORMATION
  Report Type: Spontaneous
  Country: US (occurrence: US)
  Receive Date: 20140606
  Receipt Date: 20140606
  Transmission Date: 20141212
  Serious: Yes (Hospitalization)
  Sender: FDA-Public Use
  Company Number: US-ROCHE-1412910

PATIENT
  Age: 47 Year
  Sex: Female

DRUGS (1)
  1. ACTIVASE [Suspect]
     Indication: DEEP VEIN THROMBOSIS
     Dosage: 0.5 MG PER HOUR
     Route: 042
     Dates: start: 20140529, end: 20140601

REACTIONS (1)
  - Blood fibrinogen abnormal [Recovering/Resolving]
